FAERS Safety Report 4445929-3 (Version None)
Quarter: 2004Q3

REPORT INFORMATION
  Report Type: 
  Country: None (occurrence: None)
  Receive Date: 20040907
  Receipt Date: 20040907
  Transmission Date: 20050211
  Serious: Yes (Other)
  Sender: FDA-Public Use
  Company Number: None

PATIENT
  Age: 4 Year
  Sex: Female
  Weight: 16.7 kg

DRUGS (1)
  1. GLYCOLAX [Suspect]
     Indication: CONSTIPATION
     Dosage: 1/2 CAPFUL 8.5 GR IN 4 OZ FLUID PO DAILY
     Route: 048

REACTIONS (3)
  - CONSTIPATION [None]
  - FAECAL VOLUME DECREASED [None]
  - FAECES HARD [None]
